FAERS Safety Report 6442106-1 (Version None)
Quarter: 2009Q4

REPORT INFORMATION
  Report Type: 
  Country: None (occurrence: None)
  Receive Date: 20091116
  Receipt Date: 20091103
  Transmission Date: 20100525
  Serious: Yes (Hospitalization)
  Sender: FDA-Public Use
  Company Number: PHHY2009DE48055

PATIENT
  Age: 22 Year
  Sex: Male

DRUGS (19)
  1. LEPONEX [Suspect]
     Dosage: 300 MG, QD
     Route: 048
     Dates: start: 20070411
  2. LEPONEX [Suspect]
     Dosage: 12.5 MG, QD
     Route: 048
     Dates: start: 20070417, end: 20070417
  3. LEPONEX [Suspect]
     Dosage: 25 MG, QD
     Route: 048
     Dates: start: 20070418, end: 20070419
  4. LEPONEX [Suspect]
     Dosage: 50 MG, QD
     Route: 048
     Dates: start: 20070420, end: 20070422
  5. LEPONEX [Suspect]
     Dosage: 75 MG, QD
     Route: 048
     Dates: start: 20070423, end: 20070423
  6. LEPONEX [Suspect]
     Dosage: 400 MG, QD
     Route: 048
     Dates: start: 20070505
  7. LEPONEX [Suspect]
     Dosage: 250 MG, QD
     Route: 048
     Dates: start: 20070621
  8. AKINETON [Suspect]
     Dosage: 4 MG, QD
     Route: 048
     Dates: start: 20070307
  9. AKINETON [Suspect]
     Dosage: 6 MG, QD
     Route: 048
     Dates: start: 20070406, end: 20070417
  10. AKINETON [Suspect]
     Dosage: 4 MG, QD
     Route: 048
     Dates: start: 20070418, end: 20070420
  11. AKINETON [Suspect]
     Dosage: 4 MG, QD
     Route: 048
     Dates: end: 20090504
  12. FLUANXOL [Suspect]
     Dosage: 10 MG, QD
     Route: 048
     Dates: start: 20070321, end: 20070326
  13. FLUANXOL [Suspect]
     Dosage: 15 MG, QD
     Route: 048
     Dates: start: 20070327, end: 20070401
  14. FLUANXOL [Suspect]
     Dosage: 10 MG, QD
     Route: 048
     Dates: start: 20070402, end: 20070405
  15. FLUANXOL [Suspect]
     Dosage: 7 MG, QD
     Route: 048
     Dates: start: 20070406, end: 20070410
  16. FLUANXOL [Suspect]
     Dosage: 5 MG, QD
     Route: 048
     Dates: start: 20070411, end: 20070419
  17. FLUANXOL [Suspect]
     Dosage: 2 MG, QD
     Route: 048
     Dates: start: 20070720, end: 20070720
  18. SOLIAN [Suspect]
     Dosage: 400 MG, QD
     Route: 048
     Dates: start: 20080418
  19. TRUXAL [Suspect]
     Dosage: 50 MG, QD
     Dates: start: 20070413, end: 20070420

REACTIONS (4)
  - ALANINE AMINOTRANSFERASE INCREASED [None]
  - ASPARTATE AMINOTRANSFERASE INCREASED [None]
  - BLOOD CREATINE PHOSPHOKINASE INCREASED [None]
  - MYOPATHY [None]
